FAERS Safety Report 4827286-3 (Version None)
Quarter: 2005Q4

REPORT INFORMATION
  Report Type: 
  Country: None (occurrence: None)
  Receive Date: 20051114
  Receipt Date: 20051104
  Transmission Date: 20060501
  Serious: Yes (Other)
  Sender: FDA-Public Use
  Company Number: PHEH2005US12219

PATIENT
  Sex: Male

DRUGS (2)
  1. LAMISIL [Suspect]
     Route: 048
  2. LEXAPRO [Suspect]
     Dosage: 10 MG, QD
     Route: 048

REACTIONS (2)
  - ARRHYTHMIA [None]
  - PALPITATIONS [None]
